FAERS Safety Report 8457750-X (Version None)
Quarter: 2012Q2

REPORT INFORMATION
  Report Type: 
  Country: None (occurrence: None)
  Receive Date: 20120618
  Receipt Date: 20120618
  Transmission Date: 20120825
  Serious: Yes (Disabling, Other)
  Sender: FDA-Public Use
  Company Number: None

PATIENT
  Age: 77 Year
  Sex: Female
  Weight: 77.1115 kg

DRUGS (1)
  1. PHENERGAN HCL [Suspect]
     Indication: NAUSEA
     Dates: start: 20120415, end: 20120415

REACTIONS (8)
  - DYSTONIA [None]
  - CONFUSIONAL STATE [None]
  - SPEECH DISORDER [None]
  - DRUG INTERACTION [None]
  - MEMORY IMPAIRMENT [None]
  - TREMOR [None]
  - ALTERED STATE OF CONSCIOUSNESS [None]
  - PSYCHOTIC DISORDER [None]
